FAERS Safety Report 6331380-8 (Version None)
Quarter: 2009Q3

REPORT INFORMATION
  Report Type: 
  Country: None (occurrence: None)
  Receive Date: 20090827
  Receipt Date: 20090821
  Transmission Date: 20100115
  Serious: Yes (Hospitalization, Other)
  Sender: FDA-Public Use
  Company Number: US-ABBOTT-08P-163-0440741-00

PATIENT
  Sex: Female
  Weight: 75.818 kg

DRUGS (7)
  1. HUMIRA [Suspect]
     Indication: RHEUMATOID ARTHRITIS
     Route: 058
     Dates: start: 20060801
  2. COUMADIN [Concomitant]
     Indication: ATRIAL FIBRILLATION
     Route: 048
  3. MULTIPLE UNKNOWN MEDICATIONS [Concomitant]
     Indication: DRUG USE FOR UNKNOWN INDICATION
     Route: 048
  4. PREDNISONE TAB [Concomitant]
     Indication: DRUG USE FOR UNKNOWN INDICATION
     Dates: start: 20051101
  5. MTX [Concomitant]
     Indication: DRUG USE FOR UNKNOWN INDICATION
     Dates: start: 20051201, end: 20070401
  6. MTX [Concomitant]
     Dates: start: 20070401, end: 20070401
  7. MTX [Concomitant]
     Dates: start: 20070401

REACTIONS (7)
  - BLADDER NEOPLASM [None]
  - ENDOMETRIAL CANCER STAGE III [None]
  - FATIGUE [None]
  - INCORRECT DOSE ADMINISTERED [None]
  - METASTASES TO LIVER [None]
  - METASTASES TO LUNG [None]
  - RHEUMATOID ARTHRITIS [None]
